FAERS Safety Report 6248030-1 (Version None)
Quarter: 2009Q2

REPORT INFORMATION
  Report Type: 
  Country: None (occurrence: None)
  Receive Date: 20090626
  Receipt Date: 20090408
  Transmission Date: 20091009
  Serious: Yes (Other)
  Sender: FDA-Public Use
  Company Number: JP-MERCK-0904USA01704

PATIENT

DRUGS (2)
  1. PEPCID [Suspect]
     Route: 048
  2. STATIN (UNSPECIFIED) [Suspect]
     Route: 065

REACTIONS (1)
  - RHABDOMYOLYSIS [None]
